FAERS Safety Report 23860768 (Version 1)
Quarter: 2024Q2

REPORT INFORMATION
  Report Type: Spontaneous
  Country: AR (occurrence: AR)
  Receive Date: 20240516
  Receipt Date: 20240516
  Transmission Date: 20240716
  Serious: Yes (Hospitalization)
  Sender: FDA-Public Use
  Company Number: AR-NOVOPROD-1217657

PATIENT
  Age: 52 Year
  Sex: Female
  Weight: 66.9 kg

DRUGS (1)
  1. OZEMPIC [Suspect]
     Active Substance: SEMAGLUTIDE
     Indication: Product used for unknown indication
     Dosage: 0.5 (UNIT NOT SPECIFIED)
     Route: 058
     Dates: start: 202310, end: 202402

REACTIONS (3)
  - Pruritus [Not Recovered/Not Resolved]
  - Pancreatic cyst [Unknown]
  - Dyspepsia [Recovered/Resolved]

NARRATIVE: CASE EVENT DATE: 20240201
